FAERS Safety Report 6253591-2 (Version None)
Quarter: 2009Q2

REPORT INFORMATION
  Report Type: 
  Country: None (occurrence: None)
  Receive Date: 20090630
  Receipt Date: 20090624
  Transmission Date: 20091009
  Serious: Yes (Death)
  Sender: FDA-Public Use
  Company Number: 2009AL004197

PATIENT
  Sex: Male

DRUGS (1)
  1. DIGOXIN [Suspect]
     Indication: CARDIAC FAILURE CONGESTIVE
     Dosage: 0.125MG, PO
     Route: 048
     Dates: start: 20071009

REACTIONS (5)
  - CONGESTIVE CARDIOMYOPATHY [None]
  - FALL [None]
  - HEAD INJURY [None]
  - SKIN LACERATION [None]
  - SUDDEN DEATH [None]
